FAERS Safety Report 7576829-8 (Version None)
Quarter: 2011Q2

REPORT INFORMATION
  Report Type: 
  Country: None (occurrence: None)
  Receive Date: 20110628
  Receipt Date: 20110614
  Transmission Date: 20111010
  Serious: Yes (Other)
  Sender: FDA-Public Use
  Company Number: US-JNJFOC-20110606883

PATIENT
  Sex: Male
  Weight: 131.54 kg

DRUGS (5)
  1. REMICADE [Suspect]
     Indication: PSORIATIC ARTHROPATHY
     Route: 042
     Dates: start: 20040101
  2. REMICADE [Suspect]
     Indication: PSORIASIS
     Route: 042
     Dates: start: 20110501
  3. REMICADE [Suspect]
     Route: 042
     Dates: start: 20110501
  4. REMICADE [Suspect]
     Route: 042
     Dates: start: 20040101
  5. ARAVA [Concomitant]
     Indication: PSORIATIC ARTHROPATHY
     Route: 048

REACTIONS (9)
  - POSTURE ABNORMAL [None]
  - ONYCHOMYCOSIS [None]
  - CELLULITIS [None]
  - JOINT SWELLING [None]
  - HYPERTENSION [None]
  - BASAL CELL CARCINOMA [None]
  - BLOOD CHOLESTEROL INCREASED [None]
  - STAPHYLOCOCCAL INFECTION [None]
  - BACK PAIN [None]
